FAERS Safety Report 13787400 (Version 1)
Quarter: 2017Q3

REPORT INFORMATION
  Report Type: Spontaneous
  Country: US (occurrence: US)
  Receive Date: 20170725
  Receipt Date: 20170725
  Transmission Date: 20171127
  Serious: No
  Sender: FDA-Public Use
  Company Number: US-JNJFOC-20170626518

PATIENT
  Age: 4 Year
  Sex: Female
  Weight: 15.42 kg

DRUGS (1)
  1. CHILDRENS TYLENOL [Suspect]
     Active Substance: ACETAMINOPHEN
     Indication: PYREXIA
     Dosage: ABOUT A SPOONFUL; NOT ACCURATELY MEASURED
     Route: 048
     Dates: start: 20170625

REACTIONS (2)
  - Expired product administered [Unknown]
  - Wrong technique in product usage process [Unknown]

NARRATIVE: CASE EVENT DATE: 20170625
